FAERS Safety Report 6112852-8 (Version None)
Quarter: 2009Q1

REPORT INFORMATION
  Report Type: 
  Country: None (occurrence: None)
  Receive Date: 20090312
  Receipt Date: 20090304
  Transmission Date: 20090719
  Serious: Yes (Other)
  Sender: FDA-Public Use
  Company Number: BR-ASTRAZENECA-2008UW24121

PATIENT
  Age: 42 Year
  Sex: Female

DRUGS (5)
  1. ZOLADEX [Suspect]
     Indication: RHABDOMYOMA
     Dates: start: 20080402, end: 20080402
  2. INDAPAMIDE [Concomitant]
     Indication: HYPOTHYROIDISM
     Dates: start: 20040101
  3. EUTHYROX [Concomitant]
     Indication: HYPOTHYROIDISM
     Dates: start: 20040101
  4. SIMVASTATIN [Concomitant]
     Indication: HYPERCHOLESTEROLAEMIA
     Dates: start: 20040101
  5. EZETIMIBE [Concomitant]
     Indication: HYPERCHOLESTEROLAEMIA
     Dates: start: 20040101

REACTIONS (8)
  - ARTHRALGIA [None]
  - HOT FLUSH [None]
  - HYPERSENSITIVITY [None]
  - INSOMNIA [None]
  - OCULAR HYPERTENSION [None]
  - OEDEMA PERIPHERAL [None]
  - SWELLING [None]
  - VISUAL FIELD DEFECT [None]
